FAERS Safety Report 23958788 (Version 2)
Quarter: 2024Q2

REPORT INFORMATION
  Report Type: Report from Study
  Country: FR (occurrence: FR)
  Receive Date: 20240610
  Receipt Date: 20240612
  Transmission Date: 20240716
  Serious: No
  Sender: FDA-Public Use
  Company Number: FR-SANDOZ-SDZ2024FR054524

PATIENT
  Age: 17 Year
  Sex: Male

DRUGS (1)
  1. OMNITROPE [Suspect]
     Active Substance: SOMATROPIN
     Indication: Product used for unknown indication
     Dosage: 2.5MG/D 6D/7
     Route: 058
     Dates: start: 20230921

REACTIONS (5)
  - Incorrect dose administered [Unknown]
  - Circumstance or information capable of leading to medication error [Unknown]
  - Device breakage [Unknown]
  - Device leakage [Unknown]
  - Product container issue [Unknown]
